FAERS Safety Report 20319065 (Version 1)
Quarter: 2022Q1

REPORT INFORMATION
  Report Type: Spontaneous
  Country: US (occurrence: None)
  Receive Date: 20220110
  Receipt Date: 20220110
  Transmission Date: 20220423
  Serious: Yes (Other)
  Sender: FDA-Public Use
  Company Number: None

PATIENT
  Age: 22 Year
  Sex: Female
  Weight: 60.75 kg

DRUGS (4)
  1. SINGULAIR [Suspect]
     Active Substance: MONTELUKAST SODIUM
     Indication: Asthma
     Dates: start: 20040101
  2. MAGNESIUM [Concomitant]
     Active Substance: MAGNESIUM
  3. IRON [Concomitant]
     Active Substance: IRON
  4. ZYRTEC [Concomitant]
     Active Substance: CETIRIZINE HYDROCHLORIDE

REACTIONS (8)
  - Obsessive-compulsive personality disorder [None]
  - Anxiety [None]
  - Sleep paralysis [None]
  - Abnormal dreams [None]
  - Nightmare [None]
  - Pain in extremity [None]
  - Depression [None]
  - Therapy cessation [None]

NARRATIVE: CASE EVENT DATE: 20161013
